FAERS Safety Report 9041459 (Version 1)
Quarter: 2013Q1

REPORT INFORMATION
  Report Type: Spontaneous
  Country: US (occurrence: None)
  Receive Date: 20130114
  Receipt Date: 20130114
  Transmission Date: 20140127
  Serious: Yes (Death)
  Sender: FDA-Public Use
  Company Number: AUR-APL-2013-00165

PATIENT
  Age: 48 Year
  Sex: Female

DRUGS (6)
  1. LAMOTRIGINE (LAMOTRIGINE) [Suspect]
     Indication: PRODUCT USED FOR UNKNOWN INDICATION
  2. CARISOPRODOL (CARISOPRODOL) [Suspect]
  3. MORPHINE [Suspect]
  4. TRAMADOL (TRAMADOL) [Suspect]
  5. MEPROBAMATE [Suspect]
  6. BUTALBITAL [Suspect]

REACTIONS (2)
  - Drug abuse [None]
  - Toxicity to various agents [None]
